FAERS Safety Report 13184366 (Version 1)
Quarter: 2017Q1

REPORT INFORMATION
  Report Type: Spontaneous
  Country: DE (occurrence: DE)
  Receive Date: 20170203
  Receipt Date: 20170203
  Transmission Date: 20170428
  Serious: Yes (Other)
  Sender: FDA-Public Use
  Company Number: DE-ASTRAZENECA-2017SE12088

PATIENT
  Age: 75 Year
  Sex: Female

DRUGS (7)
  1. SALBUTAMOL [Concomitant]
     Active Substance: ALBUTEROL
  2. BRETARIS GENUAIR [Suspect]
     Active Substance: ACLIDINIUM BROMIDE
     Route: 055
     Dates: start: 201612
  3. FORMOTEROL [Concomitant]
     Active Substance: FORMOTEROL
  4. VALSARTAN. [Concomitant]
     Active Substance: VALSARTAN
     Dosage: 80.0MG UNKNOWN
  5. FUROSEMIDE. [Concomitant]
     Active Substance: FUROSEMIDE
     Dosage: 40.0MG UNKNOWN
  6. BECLOMETHASONE [Concomitant]
     Active Substance: BECLOMETHASONE
  7. BISOPROLOL [Concomitant]
     Active Substance: BISOPROLOL
     Dosage: 10.0MG UNKNOWN

REACTIONS (5)
  - Dyspnoea [Unknown]
  - Epistaxis [Not Recovered/Not Resolved]
  - Panic attack [Unknown]
  - Headache [Not Recovered/Not Resolved]
  - Dizziness [Not Recovered/Not Resolved]

NARRATIVE: CASE EVENT DATE: 201701
